FAERS Safety Report 15155909 (Version 1)
Quarter: 2018Q3

REPORT INFORMATION
  Report Type: Spontaneous
  Country: FR (occurrence: FR)
  Receive Date: 20180717
  Receipt Date: 20180717
  Transmission Date: 20181010
  Serious: Yes (Other)
  Sender: FDA-Public Use
  Company Number: FR-US WORLDMEDS, LLC-STA_00019626

PATIENT
  Age: 67 Year
  Sex: Male

DRUGS (1)
  1. APOMORPHINE HYDROCHLORIDE [Suspect]
     Active Substance: APOMORPHINE HYDROCHLORIDE
     Indication: ON AND OFF PHENOMENON
     Dosage: 5MG/H FOR 12H/DAY, AFTER 10W INCREASED TO 24H/DAY; DILUTION OF 5MG/ML 20%
     Route: 058

REACTIONS (2)
  - Eosinophilia [Recovered/Resolved]
  - Panniculitis [Unknown]
